FAERS Safety Report 15674014 (Version 1)
Quarter: 2018Q4

REPORT INFORMATION
  Report Type: Spontaneous
  Country: US (occurrence: US)
  Receive Date: 20181129
  Receipt Date: 20181129
  Transmission Date: 20190205
  Serious: No
  Sender: FDA-Public Use
  Company Number: US-ASTRAZENECA-2018SF46656

PATIENT
  Age: 23121 Day
  Sex: Female
  Weight: 90.7 kg

DRUGS (1)
  1. PULMICORT FLEXHALER [Suspect]
     Active Substance: BUDESONIDE
     Indication: ASTHMA
     Route: 055
     Dates: start: 20181103

REACTIONS (3)
  - Intentional underdose [Unknown]
  - Wrong technique in product usage process [Unknown]
  - Sinus disorder [Unknown]

NARRATIVE: CASE EVENT DATE: 20181103
